FAERS Safety Report 6309810-7 (Version None)
Quarter: 2009Q3

REPORT INFORMATION
  Report Type: 
  Country: None (occurrence: None)
  Receive Date: 20090811
  Receipt Date: 20090626
  Transmission Date: 20100115
  Serious: No
  Sender: FDA-Public Use
  Company Number: 1000007085

PATIENT
  Age: 51 Year
  Sex: Female

DRUGS (12)
  1. SAVELLA [Suspect]
     Indication: FIBROMYALGIA
     Dosage: SEE IMAGE
     Route: 048
     Dates: start: 20090519, end: 20090519
  2. SAVELLA [Suspect]
     Indication: FIBROMYALGIA
     Dosage: SEE IMAGE
     Route: 048
     Dates: start: 20090520, end: 20090521
  3. SAVELLA [Suspect]
     Indication: FIBROMYALGIA
     Dosage: SEE IMAGE
     Route: 048
     Dates: start: 20090522, end: 20090525
  4. SAVELLA [Suspect]
     Indication: FIBROMYALGIA
     Dosage: SEE IMAGE
     Route: 048
     Dates: start: 20090526
  5. FENTANYL [Concomitant]
  6. OXYCONTIN [Concomitant]
  7. NEURONTIN [Concomitant]
  8. EFFEXOR [Concomitant]
  9. LORAZEPAM [Concomitant]
  10. TEMAZEPAM [Concomitant]
  11. ACIPHEX [Concomitant]
  12. PROVENTIL-HFA [Concomitant]

REACTIONS (1)
  - BLISTER [None]
